FAERS Safety Report 9799041 (Version 1)
Quarter: 2014Q1

REPORT INFORMATION
  Report Type: Spontaneous
  Country: US (occurrence: US)
  Receive Date: 20140106
  Receipt Date: 20140106
  Transmission Date: 20141002
  Serious: Yes (Hospitalization)
  Sender: FDA-Public Use
  Company Number: US-GILEAD-2010-0033293

PATIENT
  Sex: Female

DRUGS (13)
  1. LETAIRIS [Suspect]
     Indication: PULMONARY ARTERIAL HYPERTENSION
     Route: 048
     Dates: start: 20100816
  2. GABAPENTIN [Concomitant]
  3. VICODIN [Concomitant]
  4. SYMBICORT [Concomitant]
  5. B-12 [Concomitant]
  6. VITAMIN D [Concomitant]
  7. BABY ASPIRIN [Concomitant]
  8. FISH OIL [Concomitant]
  9. ALBUTEROL [Concomitant]
  10. HYDROCHLOROTHIAZIDE [Concomitant]
  11. SYNTHROID [Concomitant]
  12. LISINOPRIL [Concomitant]
  13. HUMALOG [Concomitant]

REACTIONS (1)
  - Haemoglobin decreased [Recovering/Resolving]
